FAERS Safety Report 4390240-2 (Version None)
Quarter: 2004Q3

REPORT INFORMATION
  Report Type: 
  Country: None (occurrence: None)
  Receive Date: 20040701
  Receipt Date: 20040701
  Transmission Date: 20050211
  Serious: No
  Sender: FDA-Public Use
  Company Number: None

PATIENT
  Age: 44 Year
  Sex: Female

DRUGS (1)
  1. NORDETTE-21 [Suspect]
     Dosage: (UNIT DOSE) TABLETS

REACTIONS (1)
  - MEDICATION ERROR [None]
